FAERS Safety Report 19094312 (Version 1)
Quarter: 2021Q2

REPORT INFORMATION
  Report Type: Spontaneous
  Country: ES (occurrence: ES)
  Receive Date: 20210406
  Receipt Date: 20210406
  Transmission Date: 20210717
  Serious: Yes (Other)
  Sender: FDA-Public Use
  Company Number: ES-SUN PHARMACEUTICAL INDUSTRIES LTD-2021R1-289282

PATIENT
  Age: 62 Year
  Sex: Female

DRUGS (1)
  1. CLOZAPINE. [Suspect]
     Active Substance: CLOZAPINE
     Indication: SCHIZOAFFECTIVE DISORDER
     Dosage: 900 MILLIGRAM, DAILY
     Route: 065

REACTIONS (4)
  - Multiple organ dysfunction syndrome [Unknown]
  - Cardiogenic shock [Unknown]
  - Myocarditis [Unknown]
  - Tibia fracture [Recovered/Resolved]
